FAERS Safety Report 20533588 (Version 1)
Quarter: 2022Q1

REPORT INFORMATION
  Report Type: Spontaneous
  Country: PL (occurrence: PL)
  Receive Date: 20220301
  Receipt Date: 20220301
  Transmission Date: 20220423
  Serious: Yes (Death, Other)
  Sender: FDA-Public Use
  Company Number: PL-EMA-DD-20220217-pogaku_s-184539

PATIENT
  Age: 10 Year
  Sex: Male

DRUGS (5)
  1. CYTARABINE [Suspect]
     Active Substance: CYTARABINE
     Route: 065
  2. DOXORUBICIN HYDROCHLORIDE [Suspect]
     Active Substance: DOXORUBICIN HYDROCHLORIDE
     Indication: Embryonal rhabdomyosarcoma
     Dosage: 320 MILLIGRAM/SQ. METER
     Route: 065
  3. DACTINOMYCIN [Suspect]
     Active Substance: DACTINOMYCIN
     Indication: Embryonal rhabdomyosarcoma
     Dosage: 7.5 MILLIEQUIVALENT PER SQUARE METRE
  4. IFOSFAMIDE [Suspect]
     Active Substance: IFOSFAMIDE
     Indication: Embryonal rhabdomyosarcoma
     Dosage: 54000 MILLIGRAM/SQ. METER
     Route: 065
  5. VINCRISTINE [Suspect]
     Active Substance: VINCRISTINE
     Indication: Embryonal rhabdomyosarcoma
     Dosage: 19.5 MILLIGRAM/SQ. METER
     Route: 065

REACTIONS (8)
  - Second primary malignancy [Fatal]
  - Acute myeloid leukaemia [Fatal]
  - Myelodysplastic syndrome [Fatal]
  - Multiple organ dysfunction syndrome [Fatal]
  - Streptococcal sepsis [Not Recovered/Not Resolved]
  - Neutropenia [Not Recovered/Not Resolved]
  - Toxicity to various agents [Unknown]
  - Chromosome analysis abnormal [Not Recovered/Not Resolved]

NARRATIVE: CASE EVENT DATE: 20110101
